FAERS Safety Report 6795724-5 (Version None)
Quarter: 2010Q2

REPORT INFORMATION
  Report Type: 
  Country: None (occurrence: None)
  Receive Date: 20100625
  Receipt Date: 20100614
  Transmission Date: 20101027
  Serious: Yes (Hospitalization)
  Sender: FDA-Public Use
  Company Number: FR-ELI_LILLY_AND_COMPANY-FR201006003382

PATIENT
  Sex: Female

DRUGS (5)
  1. PROZAC [Suspect]
     Dosage: 20 MG, DAILY (1/D)
     Route: 048
     Dates: end: 20091017
  2. NEBILOX [Concomitant]
     Route: 048
     Dates: end: 20091017
  3. INIPOMP [Concomitant]
     Route: 048
     Dates: end: 20091017
  4. SOLUPRED [Concomitant]
     Route: 048
     Dates: end: 20091017
  5. EFFEXOR [Concomitant]
     Dosage: 75 MG, DAILY (1/D)
     Route: 048
     Dates: end: 20091113

REACTIONS (2)
  - ACCOMMODATION DISORDER [None]
  - DEPRESSION [None]
